FAERS Safety Report 9098708 (Version 1)
Quarter: 2013Q1

REPORT INFORMATION
  Report Type: Spontaneous
  Country: US (occurrence: US)
  Receive Date: 20130213
  Receipt Date: 20130213
  Transmission Date: 20140127
  Serious: No
  Sender: FDA-Public Use
  Company Number: US-ALLERGAN-1216697US

PATIENT
  Age: 29 Year
  Sex: Male

DRUGS (1)
  1. LASTACAFT [Suspect]
     Indication: EYE ALLERGY
     Dosage: 2 GTT, UNK
     Route: 047
     Dates: start: 20121129

REACTIONS (1)
  - Eye irritation [Recovered/Resolved]
